FAERS Safety Report 8180966-7 (Version None)
Quarter: 2012Q1

REPORT INFORMATION
  Report Type: 
  Country: None (occurrence: None)
  Receive Date: 20120302
  Receipt Date: 20120219
  Transmission Date: 20120608
  Serious: No
  Sender: FDA-Public Use
  Company Number: US-BAYER-2012-017047

PATIENT

DRUGS (2)
  1. ALEVE (CAPLET) [Suspect]
     Dosage: 3 U, UNK
     Route: 048
  2. DILAUDID [Concomitant]
     Dosage: 4 MG, UNK

REACTIONS (1)
  - NO ADVERSE EVENT [None]
